FAERS Safety Report 14182839 (Version 1)
Quarter: 2017Q4

REPORT INFORMATION
  Report Type: Spontaneous
  Country: US (occurrence: US)
  Receive Date: 20171113
  Receipt Date: 20171113
  Transmission Date: 20180321
  Serious: No
  Sender: FDA-Public Use
  Company Number: US-GLAXOSMITHKLINE-US2017GSK171609

PATIENT

DRUGS (1)
  1. TARGET NTS CLEAR 21 MG TRANSDERMAL PATCH [Suspect]
     Active Substance: NICOTINE
     Indication: SMOKING CESSATION THERAPY
     Dosage: UNK

REACTIONS (5)
  - Application site pruritus [Unknown]
  - Application site rash [Unknown]
  - Application site vesicles [Unknown]
  - Application site erythema [Unknown]
  - Nightmare [Unknown]
